FAERS Safety Report 15863210 (Version 2)
Quarter: 2019Q2

REPORT INFORMATION
  Report Type: Spontaneous
  Country: PT (occurrence: PT)
  Receive Date: 20190124
  Receipt Date: 20190411
  Transmission Date: 20190711
  Serious: Yes (Hospitalization)
  Sender: FDA-Public Use
  Company Number: PT-BAUSCH-BL-2019-002056

PATIENT
  Age: 40 Year
  Sex: Male

DRUGS (9)
  1. INFLIXIMAB [Concomitant]
     Active Substance: INFLIXIMAB
     Dosage: COMBINED TREATMENT WITH THE ANTI-TNF ALPHA INFLIXIMAB WAS INITIATED
  2. RIFAMPICIN [Concomitant]
     Active Substance: RIFAMPIN
     Indication: DISSEMINATED TUBERCULOSIS
  3. PREDNISOLONE. [Suspect]
     Active Substance: PREDNISOLONE
     Indication: CROHN^S DISEASE
     Route: 065
  4. ETHAMBUTOL [Concomitant]
     Active Substance: ETHAMBUTOL HYDROCHLORIDE
     Indication: DISSEMINATED TUBERCULOSIS
  5. INFLIXIMAB [Concomitant]
     Active Substance: INFLIXIMAB
     Dosage: RESTARTED UNEVENTFULLY,1 YEAR AFTER ANTIMICROBIAL THERAPY
  6. PYRAZINAMID [Concomitant]
     Active Substance: PYRAZINAMIDE
     Indication: DISSEMINATED TUBERCULOSIS
  7. AZATHIOPRINE. [Suspect]
     Active Substance: AZATHIOPRINE
     Indication: CROHN^S DISEASE
     Route: 065
     Dates: start: 2001
  8. INFLIXIMAB [Concomitant]
     Active Substance: INFLIXIMAB
     Indication: CROHN^S DISEASE
     Dates: start: 2001
  9. ISONIAZID. [Concomitant]
     Active Substance: ISONIAZID
     Indication: DISSEMINATED TUBERCULOSIS

REACTIONS (2)
  - Intestinal obstruction [Unknown]
  - False negative investigation result [Unknown]
